FAERS Safety Report 17151587 (Version 1)
Quarter: 2019Q4

REPORT INFORMATION
  Report Type: Spontaneous
  Country: US (occurrence: US)
  Receive Date: 20191121
  Receipt Date: 20191121
  Transmission Date: 20200122
  Serious: Yes (Hospitalization)
  Sender: FDA-Public Use
  Company Number: None

PATIENT
  Age: 63 Year
  Sex: Female

DRUGS (10)
  1. TURMERIC [Concomitant]
     Active Substance: HERBALS\TURMERIC
  2. VITAMIN D3 [Concomitant]
     Active Substance: CHOLECALCIFEROL
  3. LEVOTHYROXIN [Concomitant]
     Active Substance: LEVOTHYROXINE
  4. CALC ACETATE [Concomitant]
     Active Substance: CALCIUM ACETATE
  5. MELOXICAM. [Concomitant]
     Active Substance: MELOXICAM
  6. ENBREL [Suspect]
     Active Substance: ETANERCEPT
     Indication: RHEUMATOID ARTHRITIS
     Dosage: ?          OTHER DOSE:1 PEN;?
     Route: 058
  7. SYNTHROID [Concomitant]
     Active Substance: LEVOTHYROXINE SODIUM
  8. LVEOTHYROXIN [Concomitant]
  9. ACIDOPHILU [Concomitant]
  10. CRUSH VIT C [Concomitant]

REACTIONS (1)
  - Nerve compression [None]

NARRATIVE: CASE EVENT DATE: 20191115
